FAERS Safety Report 7513064-3 (Version None)
Quarter: 2011Q2

REPORT INFORMATION
  Report Type: 
  Country: None (occurrence: None)
  Receive Date: 20110525
  Receipt Date: 20110525
  Transmission Date: 20111010
  Serious: Yes (Hospitalization)
  Sender: FDA-Public Use
  Company Number: None

PATIENT
  Age: 61 Year
  Sex: Male
  Weight: 88.4 kg

DRUGS (1)
  1. DABIGATRAN 150MG BOEHRINGER INGELHEIM [Suspect]
     Indication: ATRIAL FIBRILLATION
     Dosage: 150MG ONCE TO TWICE DAILY PO
     Route: 048
     Dates: start: 20010509, end: 20110523

REACTIONS (12)
  - BLOOD ALKALINE PHOSPHATASE INCREASED [None]
  - NAUSEA [None]
  - RETCHING [None]
  - HYPOPHAGIA [None]
  - ACTIVATED PARTIAL THROMBOPLASTIN TIME PROLONGED [None]
  - RENAL FAILURE ACUTE [None]
  - BLOOD BILIRUBIN INCREASED [None]
  - PERICARDIAL EFFUSION [None]
  - ASPARTATE AMINOTRANSFERASE DECREASED [None]
  - INTERNATIONAL NORMALISED RATIO INCREASED [None]
  - DIALYSIS [None]
  - HAEMOGLOBIN DECREASED [None]
